FAERS Safety Report 9341954 (Version 2)
Quarter: 2013Q4

REPORT INFORMATION
  Report Type: Spontaneous
  Country: FR (occurrence: FR)
  Receive Date: 20130611
  Receipt Date: 20131122
  Transmission Date: 20140711
  Serious: Yes (Life-Threatening, Hospitalization)
  Sender: FDA-Public Use
  Company Number: FR-VERTEX PHARMACEUTICALS INC-2013-006923

PATIENT
  Age: 68 Year
  Sex: Female
  Weight: 66 kg

DRUGS (9)
  1. INCIVO [Suspect]
     Indication: HEPATITIS C
     Dosage: 750 MG, TID
     Route: 048
     Dates: start: 20111017, end: 20120101
  2. PEGINTERFERON ALFA [Suspect]
     Indication: HEPATITIS C
     Dosage: 180 ?G, QW
     Route: 065
     Dates: start: 20111017, end: 20120106
  3. RIBAVIRIN [Suspect]
     Indication: HEPATITIS C
     Dosage: 800 MG, QD
     Route: 065
     Dates: start: 20111017, end: 20120106
  4. TILDIEM [Suspect]
     Indication: PROPHYLAXIS
     Dosage: 60 MG, QD FROM SEVERAL YEARS
     Route: 065
     Dates: start: 2002
  5. EFFEXOR [Suspect]
     Indication: DEPRESSION
     Dosage: 75 MG, QD 75 PER DAY WITH MEALS FOR 10 YEARS
     Route: 065
     Dates: start: 2002
  6. NOCTAMIDE [Suspect]
     Indication: INSOMNIA
     Dosage: 2 MG, QD 1 CAPSULE PER DAY AT EVENING FOR 10 YEARS
     Route: 065
     Dates: start: 2003
  7. NEORECORMON [Suspect]
     Indication: ANAEMIA
     Dosage: 30000 IU, QD 3 INJECTIONS GIVEN IN DEC-2011
     Route: 065
     Dates: start: 20111205, end: 20120106
  8. ARIMIDEX [Concomitant]
     Indication: BREAST CANCER
     Dosage: DOSAGE FORM: UNSPECIFIED
     Route: 065
     Dates: start: 1992
  9. UVEDOSE [Concomitant]
     Dosage: DOSAGE FORM: UNSPECIFIED, 1 VIAL EVERY 3 MONTHS FOR APPROX 10 YEARS
     Route: 065

REACTIONS (5)
  - Drug reaction with eosinophilia and systemic symptoms [Unknown]
  - Toxic skin eruption [Recovered/Resolved]
  - Weight decreased [Unknown]
  - Asthenia [Unknown]
  - Decreased appetite [Unknown]
